FAERS Safety Report 10346551 (Version 1)
Quarter: 2014Q3

REPORT INFORMATION
  Report Type: Spontaneous
  Country: FR (occurrence: FR)
  Receive Date: 20140729
  Receipt Date: 20140729
  Transmission Date: 20150326
  Serious: Yes (Hospitalization, Other)
  Sender: FDA-Public Use
  Company Number: FR-PFIZER INC-2014204770

PATIENT
  Age: 67 Year
  Sex: Female

DRUGS (2)
  1. ADVIL [Suspect]
     Active Substance: IBUPROFEN
     Dosage: 1 DF, SINGLE
     Route: 048
     Dates: start: 20140611, end: 20140611
  2. DULCOLAX [Suspect]
     Active Substance: BISACODYL OR DOCUSATE SODIUM
     Dosage: 2 DF, SINGLE
     Route: 048
     Dates: start: 20140613, end: 20140613

REACTIONS (3)
  - Type 2 diabetes mellitus [Unknown]
  - Stevens-Johnson syndrome [Recovered/Resolved]
  - Myelocytosis [Unknown]

NARRATIVE: CASE EVENT DATE: 20140613
